FAERS Safety Report 7641129-4 (Version None)
Quarter: 2011Q3

REPORT INFORMATION
  Report Type: 
  Country: None (occurrence: None)
  Receive Date: 20110728
  Receipt Date: 20110715
  Transmission Date: 20111222
  Serious: Yes (Hospitalization, Other)
  Sender: FDA-Public Use
  Company Number: NZ-ELI_LILLY_AND_COMPANY-NZ201107002073

PATIENT
  Age: 22 Year
  Sex: Male

DRUGS (3)
  1. RISPERDAL CONSTA [Concomitant]
  2. ALCOHOL [Concomitant]
  3. ZYPREXA [Suspect]
     Dosage: 10 MG, BID
     Route: 048

REACTIONS (3)
  - BLOOD CREATINE PHOSPHOKINASE INCREASED [None]
  - LOSS OF CONSCIOUSNESS [None]
  - OVERDOSE [None]
